FAERS Safety Report 8226094-3 (Version None)
Quarter: 2012Q1

REPORT INFORMATION
  Report Type: 
  Country: None (occurrence: None)
  Receive Date: 20120321
  Receipt Date: 20120312
  Transmission Date: 20120608
  Serious: Yes (Death, Life-Threatening, Hospitalization)
  Sender: FDA-Public Use
  Company Number: JP-AMGEN-KDC432404

PATIENT
  Age: 46 Year
  Sex: Male
  Weight: 66 kg

DRUGS (19)
  1. PANITUMUMAB [Suspect]
     Indication: COLORECTAL CANCER
     Dosage: 6 MG/KG, Q2WK
     Route: 041
     Dates: start: 20100617, end: 20100722
  2. FLUOROURACIL [Suspect]
     Indication: COLORECTAL CANCER
     Dosage: UNK UNK, Q2WK
     Route: 040
     Dates: start: 20100617
  3. FLUOROURACIL [Suspect]
     Route: 041
     Dates: start: 20100617, end: 20100722
  4. RAMELTEON [Concomitant]
     Route: 042
  5. LANSOPRAZOLE [Concomitant]
     Route: 048
  6. DAIKENTYUTO [Concomitant]
     Route: 048
  7. FLUOROURACIL [Suspect]
     Dosage: UNK UNK, Q2WK
     Route: 041
     Dates: start: 20100617
  8. LEVOFOLINATE [Suspect]
     Route: 041
     Dates: start: 20100617, end: 20100722
  9. FLUOROURACIL [Suspect]
     Route: 040
     Dates: start: 20100617, end: 20100722
  10. BEVACIZUMAB [Concomitant]
  11. TOPOTECAN [Concomitant]
     Route: 041
     Dates: start: 20100617, end: 20100722
  12. REBAMIPIDE [Concomitant]
     Route: 048
  13. ANTIHISTAMINES [Concomitant]
     Indication: PROPHYLAXIS
  14. CORTICOSTEROIDS [Concomitant]
     Indication: PROPHYLAXIS
  15. POLARAMINE [Concomitant]
     Route: 042
  16. METHYCOOL [Concomitant]
     Route: 048
  17. MINOCYCLINE HCL [Concomitant]
     Dosage: UNK UNK, UNK
     Route: 048
  18. EMEND [Concomitant]
     Route: 048
  19. DECADRON [Concomitant]
     Route: 042

REACTIONS (4)
  - WHITE BLOOD CELL COUNT DECREASED [None]
  - JAUNDICE [None]
  - DEATH [None]
  - HAEMATOCHEZIA [None]
